FAERS Safety Report 7107691-5 (Version None)
Quarter: 2010Q4

REPORT INFORMATION
  Report Type: 
  Country: None (occurrence: None)
  Receive Date: 20101117
  Receipt Date: 20101105
  Transmission Date: 20110411
  Serious: Yes (Hospitalization, Other)
  Sender: FDA-Public Use
  Company Number: US-JNJFOC-20101102922

PATIENT
  Sex: Female
  Weight: 71.67 kg

DRUGS (5)
  1. TOPAMAX [Suspect]
     Indication: MIGRAINE PROPHYLAXIS
     Dosage: NDC#50458-0639-65
     Route: 048
  2. TOPAMAX [Suspect]
     Route: 048
  3. NEXIUM [Concomitant]
     Indication: GASTROOESOPHAGEAL REFLUX DISEASE
     Route: 048
  4. ZYRTEC [Concomitant]
     Indication: MULTIPLE ALLERGIES
     Route: 048
  5. ADVAIR DISKUS 100/50 [Concomitant]
     Indication: ASTHMA
     Route: 048

REACTIONS (5)
  - ABDOMINAL PAIN UPPER [None]
  - ENDOMETRIOSIS [None]
  - HAEMORRHAGE [None]
  - PRODUCT TASTE ABNORMAL [None]
  - UTERINE CYST [None]
